FAERS Safety Report 6599146-1 (Version None)
Quarter: 2010Q1

REPORT INFORMATION
  Report Type: 
  Country: None (occurrence: None)
  Receive Date: 20100224
  Receipt Date: 20100218
  Transmission Date: 20100710
  Serious: Yes (Hospitalization)
  Sender: FDA-Public Use
  Company Number: KR-BRISTOL-MYERS SQUIBB COMPANY-14783443

PATIENT
  Age: 67 Year
  Sex: Female

DRUGS (9)
  1. ABATACEPT [Suspect]
     Indication: RHEUMATOID ARTHRITIS
     Dosage: 14SEP07-25JAN08, 03MAR08-CONT.
     Route: 042
     Dates: start: 20070914
  2. METHOTREXATE [Suspect]
     Indication: RHEUMATOID ARTHRITIS
     Dates: start: 20090317
  3. FOLIC ACID [Concomitant]
     Dates: start: 20001215
  4. TRIAMCINOLONE [Concomitant]
     Dates: start: 20001215
  5. CELECOXIB [Concomitant]
     Dates: start: 20090725
  6. ACETAMINOPHEN [Concomitant]
     Dates: start: 20091012
  7. REBAMIPIDE [Concomitant]
     Dates: start: 20090725
  8. CALCIUM CARBONATE [Concomitant]
     Dates: start: 20090725
  9. ALENDRONATE SODIUM [Concomitant]
     Dates: start: 20090731

REACTIONS (1)
  - SPINAL COLUMN STENOSIS [None]
